FAERS Safety Report 4460410-3 (Version None)
Quarter: 2004Q3

REPORT INFORMATION
  Report Type: 
  Country: None (occurrence: None)
  Receive Date: 20040928
  Receipt Date: 20040528
  Transmission Date: 20050211
  Serious: No
  Sender: FDA-Public Use
  Company Number: US-GLAXOSMITHKLINE-A0512607A

PATIENT
  Age: 78 Year
  Sex: Female

DRUGS (7)
  1. SEREVENT [Suspect]
     Indication: ASTHMA
     Dosage: 1PUFF TWICE PER DAY
     Route: 055
  2. ALBUTEROL [Concomitant]
  3. AEROBID [Concomitant]
  4. PREDNISONE [Concomitant]
  5. BELLERGAL [Concomitant]
  6. IMITREX [Concomitant]
  7. EXTRA STRENGTH TYLENOL [Concomitant]

REACTIONS (2)
  - APHONIA [None]
  - HOARSENESS [None]
